FAERS Safety Report 7217073-3 (Version None)
Quarter: 2011Q1

REPORT INFORMATION
  Report Type: 
  Country: None (occurrence: None)
  Receive Date: 20110110
  Receipt Date: 20101230
  Transmission Date: 20110831
  Serious: Yes (Other)
  Sender: FDA-Public Use
  Company Number: GB-TEVA-258935ISR

PATIENT
  Age: 13 Year
  Sex: Male
  Weight: 31.2 kg

DRUGS (5)
  1. METHYLPHENIDATE HCL [Suspect]
     Indication: ATTENTION DEFICIT/HYPERACTIVITY DISORDER
     Route: 048
  2. RIMEXOLONE [Suspect]
  3. RISPERIDONE [Suspect]
     Indication: ATTENTION DEFICIT/HYPERACTIVITY DISORDER
     Route: 048
     Dates: start: 20060601
  4. METHYLPHENIDATE HCL [Suspect]
     Indication: AUTISM
  5. PREDNISOLONE ACETATE [Suspect]

REACTIONS (10)
  - OCULAR HYPERAEMIA [None]
  - CONJUNCTIVITIS [None]
  - CSF PRESSURE INCREASED [None]
  - VISUAL IMPAIRMENT [None]
  - EYE SWELLING [None]
  - EYE PAIN [None]
  - PAPILLOEDEMA [None]
  - EYELID OEDEMA [None]
  - EYE PRURITUS [None]
  - BENIGN INTRACRANIAL HYPERTENSION [None]
